FAERS Safety Report 6655076-8 (Version None)
Quarter: 2010Q1

REPORT INFORMATION
  Report Type: 
  Country: None (occurrence: None)
  Receive Date: 20100329
  Receipt Date: 20100316
  Transmission Date: 20100710
  Serious: Yes (Hospitalization)
  Sender: FDA-Public Use
  Company Number: US-JNJFOC-20100305031

PATIENT
  Sex: Female

DRUGS (2)
  1. DOXIL [Suspect]
     Indication: OVARIAN CANCER
     Route: 042
  2. HERCEPTIN [Concomitant]
     Route: 042

REACTIONS (3)
  - COLITIS [None]
  - GASTROINTESTINAL DISORDER [None]
  - PAIN [None]
